FAERS Safety Report 5240503-3 (Version None)
Quarter: 2007Q1

REPORT INFORMATION
  Report Type: 
  Country: None (occurrence: None)
  Receive Date: 20070219
  Receipt Date: 20070215
  Transmission Date: 20070707
  Serious: Yes (Disabling)
  Sender: FDA-Public Use
  Company Number: JP-JPN-A200700535

PATIENT
  Age: 74 Year
  Sex: Male

DRUGS (9)
  1. EPIVIR [Suspect]
     Indication: HIV INFECTION
     Dosage: 150MG TWICE PER DAY
     Route: 048
     Dates: start: 20030601, end: 20030922
  2. EPIVIR [Suspect]
     Dosage: 300MG PER DAY
     Route: 048
     Dates: start: 20050523, end: 20050725
  3. EPIVIR [Suspect]
     Dosage: 150MG PER DAY
     Route: 048
     Dates: start: 20051129
  4. KALETRA [Suspect]
     Indication: HIV INFECTION
     Route: 048
     Dates: start: 20050523, end: 20050725
  5. REYATAZ [Suspect]
     Indication: HIV INFECTION
     Route: 048
     Dates: start: 20051129
  6. VIREAD [Suspect]
     Indication: HIV INFECTION
     Route: 048
     Dates: start: 20050523, end: 20050725
  7. ZIAGEN [Concomitant]
     Indication: HIV INFECTION
     Dosage: 600MG PER DAY
     Route: 048
     Dates: start: 20051129
  8. NORVIR [Concomitant]
     Indication: HIV INFECTION
     Route: 048
     Dates: start: 20051129
  9. BAKTAR [Concomitant]
     Indication: ANTIFUNGAL PROPHYLAXIS
     Dosage: 1 PER DAY
     Route: 048
     Dates: start: 20050523

REACTIONS (1)
  - RENAL IMPAIRMENT [None]
